FAERS Safety Report 10036244 (Version 1)
Quarter: 2014Q1

REPORT INFORMATION
  Report Type: Spontaneous
  Country: US (occurrence: None)
  Receive Date: 20140306
  Receipt Date: 20140306
  Transmission Date: 20141002
  Serious: Yes (Other)
  Sender: FDA-Public Use
  Company Number: 163-21880-13114779

PATIENT
  Age: 49 Year
  Sex: Male
  Weight: 104.78 kg

DRUGS (8)
  1. REVLIMID (LENALIDOMIDE) (25 MILLIGRAM, CAPSULES) [Suspect]
     Indication: PLASMA CELL MYELOMA
     Dosage: 21 IN 21 D
     Dates: start: 20130129, end: 20131210
  2. DEXAMETHASONE (DEXAMETHASONE) [Concomitant]
  3. ZOMETA (ZOLEDRONIC ACID) [Concomitant]
  4. METFORMIN HCL (METFORMIN HYDROCHLORIDE) [Concomitant]
  5. LISINOPRIL (LISINOPRIL) (TABLETS) [Concomitant]
  6. ALLOPURINOL (ALLOPURINOL) [Concomitant]
  7. CITRUS  CALCIUM + D3 (CALCIUM D3 ^STADA^) [Concomitant]
  8. CLARITIN (LORATADINE) [Concomitant]

REACTIONS (2)
  - Hepatic enzyme increased [None]
  - Blood glucose increased [None]
